FAERS Safety Report 7487998-2 (Version None)
Quarter: 2011Q2

REPORT INFORMATION
  Report Type: 
  Country: None (occurrence: None)
  Receive Date: 20110518
  Receipt Date: 20110513
  Transmission Date: 20111010
  Serious: No
  Sender: FDA-Public Use
  Company Number: US-PFIZER INC-2011060509

PATIENT
  Sex: Female
  Weight: 73.016 kg

DRUGS (8)
  1. LIPITOR [Suspect]
     Dosage: 80 MG, ONCE DAILY, AT NIGHT
     Route: 048
  2. OMEPRAZOLE [Concomitant]
     Dosage: UNK
  3. CALCIUM CARBONATE [Concomitant]
     Dosage: UNK
  4. VITAMIN D [Concomitant]
     Dosage: UNK
  5. COENZYME Q10 [Concomitant]
     Dosage: UNK
  6. LIPITOR [Suspect]
     Indication: HYPERLIPIDAEMIA
     Dosage: 20 MG, DAILY
     Route: 048
     Dates: start: 19990101
  7. LIPITOR [Suspect]
     Dosage: 40 MG, DAILY
  8. EVISTA [Concomitant]
     Dosage: UNK

REACTIONS (2)
  - GASTROINTESTINAL DISORDER [None]
  - ABDOMINAL DISCOMFORT [None]
